FAERS Safety Report 4378906-1 (Version None)
Quarter: 2004Q2

REPORT INFORMATION
  Report Type: 
  Country: None (occurrence: None)
  Receive Date: 20040610
  Receipt Date: 20040601
  Transmission Date: 20050107
  Serious: Yes (Life-Threatening, Other)
  Sender: FDA-Public Use
  Company Number: 2004036342

PATIENT
  Age: 36 Year
  Sex: Male

DRUGS (2)
  1. ATARAX [Suspect]
     Indication: PREMEDICATION
     Dosage: 100 MG (ONCE), ORAL
     Route: 048
     Dates: start: 20040518, end: 20040518
  2. LIDOCAINE HYDROCHLORIDE [Concomitant]

REACTIONS (6)
  - ANAESTHETIC COMPLICATION [None]
  - BRADYCARDIA [None]
  - CHILLS [None]
  - CONVULSION [None]
  - PALLOR [None]
  - PROCEDURAL COMPLICATION [None]
